FAERS Safety Report 17021220 (Version 1)
Quarter: 2019Q4

REPORT INFORMATION
  Report Type: Spontaneous
  Country: CA (occurrence: CA)
  Receive Date: 20191112
  Receipt Date: 20191112
  Transmission Date: 20200122
  Serious: Yes (Other)
  Sender: FDA-Public Use
  Company Number: CA-PFIZER INC-2019478154

PATIENT
  Sex: Male

DRUGS (1)
  1. ADVIL LIQUI-GELS [Suspect]
     Active Substance: IBUPROFEN
     Indication: ARTHROPATHY
     Dosage: 200 MG, UNK
     Dates: start: 2018, end: 201908

REACTIONS (2)
  - Renal disorder [Unknown]
  - Contraindicated product administered [Unknown]
